FAERS Safety Report 19481818 (Version 1)
Quarter: 2021Q3

REPORT INFORMATION
  Report Type: Spontaneous
  Country: US (occurrence: US)
  Receive Date: 20210701
  Receipt Date: 20210701
  Transmission Date: 20211014
  Serious: Yes (Other)
  Sender: FDA-Public Use
  Company Number: NVSC2021US143502

PATIENT

DRUGS (5)
  1. GEMCITABINE. [Concomitant]
     Active Substance: GEMCITABINE
     Indication: LEIOMYOSARCOMA
     Dosage: DOSE LEVEL 3
     Route: 065
  2. PAZOPANIB [Suspect]
     Active Substance: PAZOPANIB
     Indication: LEIOMYOSARCOMA
     Dosage: DOSE LEVEL 3
     Route: 065
  3. DOXORUBICIN [Concomitant]
     Active Substance: DOXORUBICIN
     Indication: LEIOMYOSARCOMA
     Dosage: DOSE LEVEL 3
     Route: 065
  4. IFOSFAMIDE. [Concomitant]
     Active Substance: IFOSFAMIDE
     Indication: LEIOMYOSARCOMA
     Dosage: DOSE LEVEL 3
     Route: 065
  5. DACARBAZINE. [Concomitant]
     Active Substance: DACARBAZINE
     Indication: LEIOMYOSARCOMA
     Dosage: UNK
     Route: 065

REACTIONS (1)
  - Drug-induced liver injury [Unknown]
